FAERS Safety Report 5242759-X (Version None)
Quarter: 2007Q1

REPORT INFORMATION
  Report Type: 
  Country: None (occurrence: None)
  Receive Date: 20061201
  Receipt Date: 20060901
  Transmission Date: 20070707
  Serious: No
  Sender: FDA-Public Use
  Company Number: 2006PV012825

PATIENT
  Age: 69 Year
  Sex: Male
  Weight: 85.7298 kg

DRUGS (8)
  1. BYETTA [Suspect]
     Indication: DIABETES MELLITUS NON-INSULIN-DEPENDENT
     Dosage: SEE IMAGE
     Route: 058
     Dates: start: 20060301, end: 20060401
  2. BYETTA [Suspect]
     Indication: DIABETES MELLITUS NON-INSULIN-DEPENDENT
     Dosage: SEE IMAGE
     Route: 058
     Dates: start: 20060401, end: 20060430
  3. BYETTA [Suspect]
     Indication: DIABETES MELLITUS NON-INSULIN-DEPENDENT
     Dosage: SEE IMAGE
     Route: 058
     Dates: start: 20060501, end: 20060501
  4. BYETTA [Suspect]
  5. METFORMIN [Concomitant]
  6. GLIMEPIRIDE [Concomitant]
  7. AMARYL [Concomitant]
  8. GLUCOPHAGE [Concomitant]

REACTIONS (7)
  - ANOREXIA [None]
  - ASTHENIA [None]
  - BLOOD GLUCOSE DECREASED [None]
  - BLOOD GLUCOSE INCREASED [None]
  - ENERGY INCREASED [None]
  - INCREASED APPETITE [None]
  - WEIGHT DECREASED [None]
